FAERS Safety Report 5400041-1 (Version None)
Quarter: 2007Q3

REPORT INFORMATION
  Report Type: 
  Country: None (occurrence: None)
  Receive Date: 20070726
  Receipt Date: 20070726
  Transmission Date: 20080115
  Serious: No
  Sender: FDA-Public Use
  Company Number: None

PATIENT
  Age: 66 Year
  Sex: Female
  Weight: 77.1115 kg

DRUGS (1)
  1. DETROL LA [Suspect]
     Indication: MICTURITION URGENCY
     Dosage: 1 CAPSULE DAILY
     Dates: start: 20070610, end: 20070724

REACTIONS (2)
  - GLOSSODYNIA [None]
  - TONGUE DISORDER [None]
